FAERS Safety Report 11116684 (Version 1)
Quarter: 2015Q2

REPORT INFORMATION
  Report Type: Spontaneous
  Country: US (occurrence: US)
  Receive Date: 20150515
  Receipt Date: 20150515
  Transmission Date: 20150821
  Serious: Yes (Hospitalization)
  Sender: FDA-Public Use
  Company Number: US-TEVA-562644USA

PATIENT
  Age: 74 Year
  Sex: Male

DRUGS (4)
  1. FLUDROCORTISONE [Suspect]
     Active Substance: FLUDROCORTISONE
     Dosage: .1 MILLIGRAM DAILY;
     Route: 065
  2. LOSARTAN [Suspect]
     Active Substance: LOSARTAN
     Dosage: 25 MILLIGRAM DAILY;
     Route: 065
  3. MIDODRINE [Suspect]
     Active Substance: MIDODRINE
     Dosage: 15 MILLIGRAM DAILY;
     Route: 065
  4. CARVEDILOL. [Suspect]
     Active Substance: CARVEDILOL
     Dosage: 6.25 MILLIGRAM DAILY;
     Route: 065

REACTIONS (3)
  - Cognitive disorder [Recovering/Resolving]
  - Fall [Recovering/Resolving]
  - Orthostatic hypotension [Recovering/Resolving]
